FAERS Safety Report 12219111 (Version 2)
Quarter: 2016Q4

REPORT INFORMATION
  Report Type: Spontaneous
  Country: DE (occurrence: BE)
  Receive Date: 20160329
  Receipt Date: 20161129
  Transmission Date: 20170207
  Serious: Yes (Hospitalization)
  Sender: FDA-Public Use
  Company Number: BE-MERZ NORTH AMERICA, INC.-16MRZ-00192

PATIENT
  Age: 42 Year
  Sex: Female

DRUGS (1)
  1. ASCLERA [Suspect]
     Active Substance: POLIDOCANOL
     Indication: VARICOSE VEIN
     Dosage: THE 8TH SESSION THIS YEAR (2015)?DOSE 2ML
     Route: 042
     Dates: start: 201511

REACTIONS (2)
  - Deep vein thrombosis [Unknown]
  - Phlebitis deep [Unknown]

NARRATIVE: CASE EVENT DATE: 201511
